FAERS Safety Report 21022274 (Version 1)
Quarter: 2022Q2

REPORT INFORMATION
  Report Type: Spontaneous
  Country: US (occurrence: None)
  Receive Date: 20220628
  Receipt Date: 20220628
  Transmission Date: 20220721
  Serious: Yes (Disabling)
  Sender: FDA-Public Use
  Company Number: None

PATIENT
  Age: 34 Year
  Sex: Female
  Weight: 58.5 kg

DRUGS (2)
  1. LUPRON [Suspect]
     Active Substance: LEUPROLIDE ACETATE
     Indication: Menopause
     Dates: start: 20080501, end: 20090201
  2. LUPRON [Suspect]
     Active Substance: LEUPROLIDE ACETATE
     Indication: Endometriosis

REACTIONS (7)
  - Mood swings [None]
  - Arthralgia [None]
  - Spinal pain [None]
  - Sciatic nerve injury [None]
  - Dental pulp disorder [None]
  - Dental caries [None]
  - Toothache [None]
